FAERS Safety Report 5092767-7 (Version None)
Quarter: 2006Q3

REPORT INFORMATION
  Report Type: 
  Country: None (occurrence: None)
  Receive Date: 20060830
  Receipt Date: 20060821
  Transmission Date: 20061208
  Serious: Yes (Hospitalization)
  Sender: FDA-Public Use
  Company Number: DE-ABBOTT-06P-062-0341594-00

PATIENT
  Sex: Male
  Weight: 75 kg

DRUGS (3)
  1. HUMIRA [Suspect]
     Indication: PSORIATIC ARTHROPATHY
     Route: 058
     Dates: start: 20060707, end: 20060721
  2. FUMARIC ACID [Concomitant]
     Indication: DRUG USE FOR UNKNOWN INDICATION
  3. RETINOIDS [Concomitant]
     Indication: DRUG USE FOR UNKNOWN INDICATION

REACTIONS (4)
  - CONDITION AGGRAVATED [None]
  - JOINT STIFFNESS [None]
  - PSORIASIS [None]
  - RASH PUSTULAR [None]
